FAERS Safety Report 19760659 (Version 1)
Quarter: 2021Q3

REPORT INFORMATION
  Report Type: Report from Study
  Country: CN (occurrence: CN)
  Receive Date: 20210830
  Receipt Date: 20210830
  Transmission Date: 20211014
  Serious: Yes (Other)
  Sender: FDA-Public Use
  Company Number: CN-ELI_LILLY_AND_COMPANY-CN202108011026

PATIENT
  Sex: Female

DRUGS (2)
  1. CATEQUENTINIB. [Concomitant]
     Active Substance: CATEQUENTINIB
     Indication: OVARIAN CANCER
     Dosage: 12 MG, CYCLICAL
     Route: 048
  2. PEMETREXED. [Suspect]
     Active Substance: PEMETREXED
     Indication: OVARIAN CANCER
     Dosage: 500 MG/M2, CYCLICAL
     Route: 042

REACTIONS (1)
  - Proteinuria [Unknown]
